FAERS Safety Report 14328764 (Version 1)
Quarter: 2017Q4

REPORT INFORMATION
  Report Type: Report from Study
  Country: DE (occurrence: DE)
  Receive Date: 20171227
  Receipt Date: 20171227
  Transmission Date: 20180321
  Serious: Yes (Death)
  Sender: FDA-Public Use
  Company Number: DE-PFIZER INC-2017547848

PATIENT

DRUGS (2)
  1. IDARUBICIN HCL [Suspect]
     Active Substance: IDARUBICIN HYDROCHLORIDE
     Indication: ACUTE PROMYELOCYTIC LEUKAEMIA
     Dosage: UNK
  2. TRETINOIN. [Suspect]
     Active Substance: TRETINOIN
     Indication: ACUTE PROMYELOCYTIC LEUKAEMIA
     Dosage: UNK

REACTIONS (1)
  - Haemorrhage [Fatal]
